FAERS Safety Report 22233352 (Version 1)
Quarter: 2023Q2

REPORT INFORMATION
  Report Type: Spontaneous
  Country: US (occurrence: None)
  Receive Date: 20230420
  Receipt Date: 20230420
  Transmission Date: 20230721
  Serious: No
  Sender: FDA-Public Use
  Company Number: US-ROCHE-3087922

PATIENT
  Sex: Male

DRUGS (1)
  1. ESBRIET [Suspect]
     Active Substance: PIRFENIDONE
     Indication: Idiopathic pulmonary fibrosis
     Dosage: TAKE 1 CAPSULE THREE TIMES DAILY FOR 7 DAYS, THEN 2 CAPSULES 3 TIMES A DAY FOR 7 DAYS, THEN 3 CAPSUL
     Route: 048
     Dates: start: 202204

REACTIONS (1)
  - Diarrhoea [Unknown]
